FAERS Safety Report 6791478-7 (Version None)
Quarter: 2010Q2

REPORT INFORMATION
  Report Type: 
  Country: None (occurrence: None)
  Receive Date: 20100624
  Receipt Date: 20080710
  Transmission Date: 20101027
  Serious: No
  Sender: FDA-Public Use
  Company Number: US-PFIZER INC-2008058052

PATIENT
  Sex: Female
  Weight: 72.272 kg

DRUGS (4)
  1. GEODON [Suspect]
     Indication: SCHIZOPHRENIA
     Route: 048
     Dates: start: 20071201
  2. ALL OTHER THERAPEUTIC PRODUCTS [Suspect]
     Indication: SCHIZOPHRENIA
  3. RISPERIDONE [Suspect]
     Indication: SCHIZOPHRENIA
  4. ZYPREXA [Suspect]
     Indication: SCHIZOPHRENIA

REACTIONS (4)
  - GALACTORRHOEA [None]
  - HYPERSOMNIA [None]
  - INSOMNIA [None]
  - URINE OUTPUT INCREASED [None]
